FAERS Safety Report 9257675 (Version 3)
Quarter: 2013Q3

REPORT INFORMATION
  Report Type: Spontaneous
  Country: US (occurrence: US)
  Receive Date: 20130426
  Receipt Date: 20130927
  Transmission Date: 20140515
  Serious: Yes (Hospitalization, Disabling)
  Sender: FDA-Public Use
  Company Number: US-ASTRAZENECA-2013SE27725

PATIENT
  Age: 19503 Day
  Sex: Female
  Weight: 116.6 kg

DRUGS (23)
  1. NEXIUM [Suspect]
     Indication: DYSPEPSIA
     Route: 048
  2. NEXIUM [Suspect]
     Indication: HIATUS HERNIA
     Route: 048
  3. NEXIUM [Suspect]
     Indication: DYSPEPSIA
     Route: 048
     Dates: start: 2005
  4. NEXIUM [Suspect]
     Indication: HIATUS HERNIA
     Route: 048
     Dates: start: 2005
  5. NEXIUM [Suspect]
     Indication: DYSPEPSIA
     Route: 048
     Dates: start: 20070508
  6. NEXIUM [Suspect]
     Indication: HIATUS HERNIA
     Route: 048
     Dates: start: 20070508
  7. PRILOSEC OTC [Suspect]
     Indication: DYSPEPSIA
     Dosage: TWO TIMES A DAY
     Route: 048
  8. PREVACID [Suspect]
     Indication: DYSPEPSIA
     Dosage: TWICE A DAY
     Route: 065
     Dates: start: 1977, end: 1999
  9. GABAPENTIN [Concomitant]
  10. TRAMADOL [Concomitant]
  11. CYMBALTA [Concomitant]
  12. CELEBREX [Concomitant]
  13. CLONAZEPAM [Concomitant]
  14. CLONAZEPAM [Concomitant]
  15. ALKA SELTZER [Concomitant]
  16. OXYCODONE [Concomitant]
     Indication: BACK PAIN
     Dosage: 10-325 WHEN NEEDED
  17. FLEXERIL [Concomitant]
  18. IRON [Concomitant]
  19. PEPTO-BISMOL [Concomitant]
  20. ROLAIDS [Concomitant]
  21. ADVIL [Concomitant]
     Dosage: FOR TWO YEARS
  22. PEPCID [Concomitant]
  23. TUMS [Concomitant]

REACTIONS (17)
  - Road traffic accident [Unknown]
  - Arthropathy [Unknown]
  - Back injury [Unknown]
  - Carpal tunnel syndrome [Unknown]
  - Back pain [Unknown]
  - Depression [Unknown]
  - Osteoporosis [Unknown]
  - Bone disorder [Unknown]
  - Multiple fractures [Unknown]
  - Arthritis [Unknown]
  - Rheumatoid arthritis [Unknown]
  - Fibromyalgia [Unknown]
  - Osteoarthritis [Unknown]
  - Meniscus injury [Unknown]
  - Osteopenia [Unknown]
  - Arthralgia [Unknown]
  - Abasia [Unknown]
